FAERS Safety Report 22694051 (Version 4)
Quarter: 2023Q4

REPORT INFORMATION
  Report Type: Spontaneous
  Country: US (occurrence: US)
  Receive Date: 20230711
  Receipt Date: 20231108
  Transmission Date: 20240110
  Serious: No
  Sender: FDA-Public Use
  Company Number: US-SA-SAC20230710000719

PATIENT
  Age: 69 Year
  Sex: Female

DRUGS (2)
  1. DUPIXENT [Suspect]
     Active Substance: DUPILUMAB
     Indication: Asthma
     Dosage: 300 MG, QOW
     Route: 058
     Dates: start: 202212
  2. SPIRONOLACTONE [Concomitant]
     Active Substance: SPIRONOLACTONE

REACTIONS (8)
  - Injection site discolouration [Recovering/Resolving]
  - Injection site rash [Recovering/Resolving]
  - Anger [Unknown]
  - Rash macular [Unknown]
  - Confusional state [Unknown]
  - Repetitive speech [Unknown]
  - Headache [Unknown]
  - Therapeutic product effect decreased [Unknown]
